FAERS Safety Report 20763344 (Version 7)
Quarter: 2024Q2

REPORT INFORMATION
  Report Type: Spontaneous
  Country: US (occurrence: US)
  Receive Date: 20220428
  Receipt Date: 20240520
  Transmission Date: 20240716
  Serious: No
  Sender: FDA-Public Use
  Company Number: US-PFIZER INC-202200518489

PATIENT
  Age: 75 Year
  Sex: Female
  Weight: 56.25 kg

DRUGS (3)
  1. IBRANCE [Suspect]
     Active Substance: PALBOCICLIB
     Indication: Breast cancer metastatic
     Dosage: 3 WEEKS ON AND 1 WEEK OFF AS A CYCLE
     Route: 048
  2. IBRANCE [Suspect]
     Active Substance: PALBOCICLIB
     Dosage: 75 MG
  3. XGEVA [Concomitant]
     Active Substance: DENOSUMAB
     Indication: Neoplasm malignant
     Dosage: UNK, MONTHLY [DOSE UNKNOWN ONCE MONTHLY INJECTION]

REACTIONS (13)
  - Skin lesion [Not Recovered/Not Resolved]
  - Alopecia [Not Recovered/Not Resolved]
  - Rash [Not Recovered/Not Resolved]
  - Dry skin [Not Recovered/Not Resolved]
  - Acne [Not Recovered/Not Resolved]
  - Rash morbilliform [Not Recovered/Not Resolved]
  - Pruritus [Unknown]
  - Scoliosis [Unknown]
  - Illness [Unknown]
  - Drug resistance [Unknown]
  - Back pain [Unknown]
  - COVID-19 [Unknown]
  - Malaise [Unknown]
